FAERS Safety Report 9681600 (Version 1)
Quarter: 2013Q4

REPORT INFORMATION
  Report Type: Spontaneous
  Country: US (occurrence: US)
  Receive Date: 20131111
  Receipt Date: 20131111
  Transmission Date: 20140711
  Serious: Yes (Other)
  Sender: FDA-Public Use
  Company Number: US-PFIZER INC-2013317975

PATIENT
  Age: 70 Year
  Sex: Female
  Weight: 67.12 kg

DRUGS (1)
  1. TIKOSYN [Suspect]
     Indication: ATRIAL FIBRILLATION
     Dosage: UNK
     Dates: start: 201308, end: 2013

REACTIONS (2)
  - Electrocardiogram QT prolonged [Unknown]
  - Drug intolerance [Unknown]
